FAERS Safety Report 20705226 (Version 2)
Quarter: 2022Q2

REPORT INFORMATION
  Report Type: Spontaneous
  Country: JP (occurrence: JP)
  Receive Date: 20220413
  Receipt Date: 20220419
  Transmission Date: 20220721
  Serious: Yes (Life-Threatening, Other)
  Sender: FDA-Public Use
  Company Number: JP-MLMSERVICE-20220331-3469304-1

PATIENT
  Age: 12 Year
  Sex: Male

DRUGS (6)
  1. DOXORUBICIN HYDROCHLORIDE [Suspect]
     Active Substance: DOXORUBICIN HYDROCHLORIDE
     Indication: Bone sarcoma
     Dosage: 75 MG/M2
  2. VINCRISTINE [Suspect]
     Active Substance: VINCRISTINE
     Indication: Bone sarcoma
     Dosage: 1.5 MG/M2
  3. CYCLOPHOSPHAMIDE [Suspect]
     Active Substance: CYCLOPHOSPHAMIDE
     Indication: Bone sarcoma
     Dosage: 1200 MG/M2
  4. ACTINOMYCIN D [Suspect]
     Active Substance: DACTINOMYCIN
     Indication: Bone sarcoma
     Dosage: 0.045 MG/KG
  5. IFOSFAMIDE [Suspect]
     Active Substance: IFOSFAMIDE
     Indication: Bone sarcoma
     Dosage: 1800 MG/M2
  6. ETOPOSIDE [Suspect]
     Active Substance: ETOPOSIDE
     Indication: Bone sarcoma
     Dosage: 100 MG/M2 ALTERNATING

REACTIONS (2)
  - Neutropenia [Unknown]
  - Anaemia [Unknown]
